FAERS Safety Report 5286349-1 (Version None)
Quarter: 2007Q1

REPORT INFORMATION
  Report Type: 
  Country: None (occurrence: None)
  Receive Date: 20070329
  Receipt Date: 20070313
  Transmission Date: 20070707
  Serious: Yes (Other)
  Sender: FDA-Public Use
  Company Number: 154227ISR

PATIENT
  Age: 12 Year
  Sex: Male

DRUGS (3)
  1. LAMOTRIGINE [Suspect]
     Indication: CONVULSION
     Dosage: SEE IMAGE
     Dates: start: 20060601
  2. LAMOTRIGINE [Suspect]
     Indication: CONVULSION
     Dosage: SEE IMAGE
     Dates: start: 20060601
  3. LAMOTRIGINE [Suspect]
     Indication: CONVULSION
     Dosage: SEE IMAGE
     Dates: start: 20060601

REACTIONS (1)
  - GROWTH RETARDATION [None]
